FAERS Safety Report 9267731 (Version 1)
Quarter: 2013Q2

REPORT INFORMATION
  Report Type: Spontaneous
  Country: NL (occurrence: NL)
  Receive Date: 20130502
  Receipt Date: 20130502
  Transmission Date: 20140414
  Serious: Yes (Other)
  Sender: FDA-Public Use
  Company Number: NL-PFIZER INC-2013132440

PATIENT
  Sex: 0

DRUGS (1)
  1. LIPITOR [Suspect]

REACTIONS (1)
  - Diplopia [Unknown]
